FAERS Safety Report 13498975 (Version 1)
Quarter: 2017Q2

REPORT INFORMATION
  Report Type: Spontaneous
  Country: DE (occurrence: DE)
  Receive Date: 20170501
  Receipt Date: 20170501
  Transmission Date: 20170830
  Serious: Yes (Death)
  Sender: FDA-Public Use
  Company Number: DE-JNJFOC-20170428010

PATIENT
  Age: 71 Year
  Sex: Female
  Weight: 78 kg

DRUGS (12)
  1. CANDESARTAN. [Concomitant]
     Active Substance: CANDESARTAN
     Route: 048
  2. INSULIN HUMAN INJECTION, ISOPHANE [Concomitant]
     Active Substance: INSULIN HUMAN
     Route: 065
  3. STANGYL [Concomitant]
     Active Substance: TRIMIPRAMINE MALEATE
     Route: 065
  4. METOPROLOL SUCCINATE. [Concomitant]
     Active Substance: METOPROLOL SUCCINATE
     Route: 048
  5. AMARYL [Concomitant]
     Active Substance: GLIMEPIRIDE
     Route: 048
  6. XARELTO [Suspect]
     Active Substance: RIVAROXABAN
     Indication: THROMBOSIS PROPHYLAXIS
     Route: 048
     Dates: start: 20140415, end: 20140821
  7. ACETYLSALICYLIC ACID [Concomitant]
     Active Substance: ASPIRIN
     Route: 048
  8. XARELTO [Suspect]
     Active Substance: RIVAROXABAN
     Indication: DEEP VEIN THROMBOSIS
     Route: 048
     Dates: start: 20140415, end: 20140821
  9. INSULIN [Concomitant]
     Active Substance: INSULIN NOS
     Route: 065
  10. SIMVASTATIN. [Concomitant]
     Active Substance: SIMVASTATIN
     Route: 048
  11. MOVICOL [Concomitant]
     Active Substance: POLYETHYLENE GLYCOL 3350\POTASSIUM CHLORIDE\SODIUM BICARBONATE\SODIUM CHLORIDE
     Route: 048
  12. LEVOTHYROXINE SODIUM. [Concomitant]
     Active Substance: LEVOTHYROXINE SODIUM
     Route: 048

REACTIONS (3)
  - Circulatory collapse [Fatal]
  - Myocardial infarction [Fatal]
  - Melaena [Fatal]

NARRATIVE: CASE EVENT DATE: 20140818
